FAERS Safety Report 5351812-1 (Version None)
Quarter: 2007Q2

REPORT INFORMATION
  Report Type: 
  Country: None (occurrence: None)
  Receive Date: 20070521
  Receipt Date: 20070302
  Transmission Date: 20071010
  Serious: No
  Sender: FDA-Public Use
  Company Number: WAES 0703USA00504

PATIENT
  Age: 56 Year
  Sex: Male

DRUGS (6)
  1. TAB JANUVIA 100 MG [Suspect]
     Indication: DIABETES MELLITUS NON-INSULIN-DEPENDENT
     Dosage: 100MG/DAILY/PO
     Route: 048
     Dates: start: 20070220, end: 20070301
  2. ANDROGEL [Concomitant]
  3. DIOVAN [Concomitant]
  4. LANTUS [Concomitant]
  5. MOBIC [Concomitant]
  6. METFORMIN [Concomitant]

REACTIONS (2)
  - COUGH [None]
  - RHINORRHOEA [None]
